FAERS Safety Report 18300645 (Version 2)
Quarter: 2021Q1

REPORT INFORMATION
  Report Type: Other
  Country: CA (occurrence: CA)
  Receive Date: 20200923
  Receipt Date: 20210121
  Transmission Date: 20210419
  Serious: Yes (Death, Other)
  Sender: FDA-Public Use
  Company Number: CA-CELLTRION INC.-2020CA026679

PATIENT

DRUGS (12)
  1. RITUXIMAB (UNKNOWN) [Suspect]
     Active Substance: RITUXIMAB
     Indication: POST TRANSPLANT LYMPHOPROLIFERATIVE DISORDER
     Dosage: UNK
     Route: 065
  2. CYCLOPHOSPHAMIDE. [Suspect]
     Active Substance: CYCLOPHOSPHAMIDE
     Indication: POST TRANSPLANT LYMPHOPROLIFERATIVE DISORDER
     Dosage: 300.0 MG/M2
     Route: 065
  3. CYCLOPHOSPHAMIDE. [Suspect]
     Active Substance: CYCLOPHOSPHAMIDE
     Indication: ACUTE LYMPHOCYTIC LEUKAEMIA
  4. DEXAMETHASONE. [Suspect]
     Active Substance: DEXAMETHASONE
     Indication: ACUTE LYMPHOCYTIC LEUKAEMIA
     Dosage: 10 MG/M2
     Route: 065
  5. PROCYTOX [Suspect]
     Active Substance: CYCLOPHOSPHAMIDE
     Indication: POST TRANSPLANT LYMPHOPROLIFERATIVE DISORDER
     Dosage: 300 MG/M2
     Route: 065
  6. CICLOSPORIN [Suspect]
     Active Substance: CYCLOSPORINE
     Indication: PRODUCT USED FOR UNKNOWN INDICATION
     Route: 065
  7. ETOPOSIDE. [Suspect]
     Active Substance: ETOPOSIDE
     Indication: ACUTE LYMPHOCYTIC LEUKAEMIA
  8. VINCRISTINE SULFATE. [Suspect]
     Active Substance: VINCRISTINE SULFATE
     Indication: POST TRANSPLANT LYMPHOPROLIFERATIVE DISORDER
     Dosage: 0.7 MG/M2
     Route: 065
  9. RITUXIMAB (UNKNOWN) [Suspect]
     Active Substance: RITUXIMAB
     Indication: ACUTE LYMPHOCYTIC LEUKAEMIA
     Dosage: UNK
     Route: 065
  10. VINCRISTINE [Suspect]
     Active Substance: VINCRISTINE
     Indication: ACUTE LYMPHOCYTIC LEUKAEMIA
     Dosage: 0.75 MG/M2
     Route: 065
  11. ETOPOSIDE. [Suspect]
     Active Substance: ETOPOSIDE
     Indication: POST TRANSPLANT LYMPHOPROLIFERATIVE DISORDER
     Dosage: 50.0 MG/M2
     Route: 065
  12. GANCICLOVIR. [Suspect]
     Active Substance: GANCICLOVIR
     Indication: PRODUCT USED FOR UNKNOWN INDICATION
     Route: 065

REACTIONS (8)
  - Neoplasm progression [Fatal]
  - Malignant neoplasm progression [Fatal]
  - Renal impairment [Fatal]
  - Multiple organ dysfunction syndrome [Fatal]
  - Post transplant lymphoproliferative disorder [Fatal]
  - Hepatic function abnormal [Fatal]
  - Product use issue [Unknown]
  - Off label use [Unknown]
